FAERS Safety Report 8445223-X (Version None)
Quarter: 2012Q2

REPORT INFORMATION
  Report Type: 
  Country: None (occurrence: None)
  Receive Date: 20120618
  Receipt Date: 20120615
  Transmission Date: 20120825
  Serious: Yes (Hospitalization)
  Sender: FDA-Public Use
  Company Number: IL-ROCHE-1078954

PATIENT
  Age: 79 Year
  Sex: Male

DRUGS (3)
  1. AVASTIN [Suspect]
     Indication: LUNG NEOPLASM MALIGNANT
     Route: 065
  2. CARBOPLATIN [Concomitant]
     Indication: LUNG NEOPLASM MALIGNANT
     Route: 065
  3. ALIMTA [Concomitant]
     Indication: LUNG NEOPLASM MALIGNANT
     Route: 065

REACTIONS (3)
  - ASTHENIA [None]
  - HYPOGLYCAEMIA [None]
  - HYPERTENSION [None]
